FAERS Safety Report 4599493-9 (Version None)
Quarter: 2005Q1

REPORT INFORMATION
  Report Type: 
  Country: None (occurrence: None)
  Receive Date: 20050303
  Receipt Date: 20050210
  Transmission Date: 20050727
  Serious: Yes (Hospitalization)
  Sender: FDA-Public Use
  Company Number: US_0502112400

PATIENT
  Age: 72 Year
  Sex: Female
  Weight: 91 kg

DRUGS (13)
  1. FORTEO [Suspect]
     Indication: OSTEOPOROSIS
     Dosage: 20 UG DAY
  2. PAROXETINE HCL [Concomitant]
  3. LORATADINE [Concomitant]
  4. PROTONIX [Concomitant]
  5. LISINOPRIL [Concomitant]
  6. DILANTIN [Concomitant]
  7. BACLOFEN [Concomitant]
  8. BUMETANIDE [Concomitant]
  9. ACIDOPHILUS [Concomitant]
  10. M.V.I. [Concomitant]
  11. AMBIEN [Concomitant]
  12. LORAZEPAM [Concomitant]
  13. OXYCODONE HCL [Concomitant]

REACTIONS (1)
  - DECUBITUS ULCER [None]
